FAERS Safety Report 12728497 (Version 3)
Quarter: 2016Q4

REPORT INFORMATION
  Report Type: Spontaneous
  Country: CH (occurrence: CH)
  Receive Date: 20160909
  Receipt Date: 20161006
  Transmission Date: 20170207
  Serious: Yes (Death)
  Sender: FDA-Public Use
  Company Number: CH-PFIZER INC-2016418655

PATIENT
  Age: 75 Year
  Sex: Female

DRUGS (2)
  1. METHOTREXATE SODIUM. [Suspect]
     Active Substance: METHOTREXATE SODIUM
     Dosage: 10 MG, 1X/DAY (70 MG/WEEK)
  2. METHOTREXATE SODIUM. [Suspect]
     Active Substance: METHOTREXATE SODIUM
     Dosage: 10 MG, WEEKLY (5 MG ON MONDAY MORNING AND 5 MG ON MONDAY EVENING)

REACTIONS (7)
  - Multiple organ dysfunction syndrome [Fatal]
  - Pneumonia [Fatal]
  - End stage renal disease [Fatal]
  - Overdose [Fatal]
  - Poisoning [Fatal]
  - Drug administration error [Fatal]
  - Accidental overdose [Fatal]
